FAERS Safety Report 4476958-1 (Version None)
Quarter: 2004Q4

REPORT INFORMATION
  Report Type: 
  Country: None (occurrence: None)
  Receive Date: 20041012
  Receipt Date: 20041001
  Transmission Date: 20050328
  Serious: Yes (Other)
  Sender: FDA-Public Use
  Company Number: 163-20785-04100135

PATIENT

DRUGS (1)
  1. THALOMID [Suspect]
     Indication: MYELOID METAPLASIA
     Dosage: 50 MG/D (CYCLE = 28 DAYS), ORAL
     Route: 048

REACTIONS (12)
  - ASTHENIA [None]
  - FATIGUE [None]
  - HAEMOLYSIS [None]
  - HAEMOLYTIC ANAEMIA [None]
  - HYPERGLYCAEMIA [None]
  - HYPERHIDROSIS [None]
  - LETHARGY [None]
  - MALAISE [None]
  - PERIPHERAL MOTOR NEUROPATHY [None]
  - PLATELET COUNT ABNORMAL [None]
  - RASH [None]
  - SKIN DESQUAMATION [None]
